FAERS Safety Report 7702336-5 (Version None)
Quarter: 2011Q3

REPORT INFORMATION
  Report Type: 
  Country: None (occurrence: None)
  Receive Date: 20110822
  Receipt Date: 20110812
  Transmission Date: 20111222
  Serious: Yes (Hospitalization, Other)
  Sender: FDA-Public Use
  Company Number: PHHY2011BR73145

PATIENT
  Age: 27 Year
  Sex: Female

DRUGS (2)
  1. KETOPROFEN [Suspect]
  2. METOCLOPRAMIDE [Suspect]

REACTIONS (9)
  - ARTHRALGIA [None]
  - PARAESTHESIA [None]
  - ABDOMINAL DISCOMFORT [None]
  - CONVULSION [None]
  - HEPATIC ENZYME INCREASED [None]
  - MOVEMENT DISORDER [None]
  - FATIGUE [None]
  - HYPONATRAEMIA [None]
  - NEURALGIA [None]
